FAERS Safety Report 7041562-8 (Version None)
Quarter: 2010Q4

REPORT INFORMATION
  Report Type: 
  Country: None (occurrence: None)
  Receive Date: 20101013
  Receipt Date: 20100219
  Transmission Date: 20110411
  Serious: No
  Sender: FDA-Public Use
  Company Number: US-ASTRAZENECA-2010SE07382

PATIENT
  Age: 67 Year
  Sex: Male
  Weight: 74.8 kg

DRUGS (4)
  1. SYMBICORT [Suspect]
     Indication: ASTHMA
     Dosage: 320/9 UG BID
     Route: 055
     Dates: start: 20080101
  2. SINGULAIR [Concomitant]
  3. ALBUTEROL [Concomitant]
  4. XOPENEX [Concomitant]

REACTIONS (4)
  - BRONCHITIS [None]
  - COUGH [None]
  - DYSPHONIA [None]
  - VOCAL CORD INFLAMMATION [None]
